FAERS Safety Report 8690833 (Version 2)
Quarter: 2013Q4

REPORT INFORMATION
  Report Type: Spontaneous
  Country: US (occurrence: US)
  Receive Date: 20120729
  Receipt Date: 20131108
  Transmission Date: 20140711
  Serious: Yes (Hospitalization, Other)
  Sender: FDA-Public Use
  Company Number: US-MSD-1207USA007390

PATIENT
  Sex: Female

DRUGS (2)
  1. FOSAMAX [Suspect]
     Indication: OSTEOPOROSIS
     Dosage: 70 MG, QW
     Route: 048
     Dates: start: 1995, end: 201105
  2. FOSAMAX [Suspect]
     Dosage: 10 MG, QD
     Route: 048

REACTIONS (10)
  - Femur fracture [Recovering/Resolving]
  - Intramedullary rod insertion [Unknown]
  - Cholecystectomy [Unknown]
  - Pelvic fracture [Unknown]
  - Sensation of foreign body [Unknown]
  - Hyperlipidaemia [Unknown]
  - Osteopenia [Unknown]
  - Hypertension [Unknown]
  - Nausea [Unknown]
  - Vomiting [Unknown]
